FAERS Safety Report 21224216 (Version 1)
Quarter: 2022Q3

REPORT INFORMATION
  Report Type: Spontaneous
  Country: US (occurrence: US)
  Receive Date: 20220817
  Receipt Date: 20220817
  Transmission Date: 20221027
  Serious: Yes (Death, Life-Threatening, Hospitalization)
  Sender: FDA-Public Use
  Company Number: US-MYLANLABS-2022M1086527

PATIENT
  Age: 64 Year
  Sex: Male

DRUGS (10)
  1. CISPLATIN [Suspect]
     Active Substance: CISPLATIN
     Indication: Osteosarcoma metastatic
     Dosage: 100 MILLIGRAM/SQ. METER, 28D CYCLE (ADMINISTERED OVER 2 HOURS ON DAY 1), INFUSION
     Route: 065
  2. CISPLATIN [Suspect]
     Active Substance: CISPLATIN
     Indication: Metastases to lung
  3. DOXORUBICIN [Suspect]
     Active Substance: DOXORUBICIN
     Indication: Osteosarcoma metastatic
     Dosage: 25 MILLIGRAM/SQ. METER, CYCLE, (ADMINISTERED OVER 4 HOURS ON DAY 1 TO 3) INFUSION
     Route: 065
  4. DOXORUBICIN [Suspect]
     Active Substance: DOXORUBICIN
     Indication: Metastases to lung
  5. IFOSFAMIDE [Suspect]
     Active Substance: IFOSFAMIDE
     Indication: Osteosarcoma metastatic
     Dosage: 1000 MILLIGRAM/SQ. METER
     Route: 042
  6. IFOSFAMIDE [Suspect]
     Active Substance: IFOSFAMIDE
     Indication: Metastases to lung
  7. FUROSEMIDE [Suspect]
     Active Substance: FUROSEMIDE
     Indication: Hypervolaemia
     Dosage: UNK
     Route: 042
  8. FUROSEMIDE [Suspect]
     Active Substance: FUROSEMIDE
     Indication: Tumour lysis syndrome
  9. RASBURICASE [Suspect]
     Active Substance: RASBURICASE
     Indication: Tumour lysis syndrome
     Dosage: 4 MILLIGRAM
     Route: 065
  10. MEROPENEM [Concomitant]
     Active Substance: MEROPENEM
     Indication: Escherichia bacteraemia
     Dosage: UNK
     Route: 065

REACTIONS (9)
  - Tumour lysis syndrome [Fatal]
  - Renal failure [Fatal]
  - Cardiac arrest [Fatal]
  - Respiratory acidosis [Fatal]
  - Metabolic acidosis [Fatal]
  - Drug ineffective [Unknown]
  - Hypervolaemia [Unknown]
  - Acute kidney injury [Unknown]
  - Respiratory failure [Unknown]
